FAERS Safety Report 12547568 (Version 1)
Quarter: 2016Q3

REPORT INFORMATION
  Report Type: Spontaneous
  Country: DE (occurrence: DE)
  Receive Date: 20160712
  Receipt Date: 20160712
  Transmission Date: 20161109
  Serious: Yes (Disabling)
  Sender: FDA-Public Use
  Company Number: DE-ROCHE-1574796

PATIENT
  Age: 79 Year
  Sex: Female

DRUGS (5)
  1. COTRIMHEXAL FORTE [Concomitant]
     Route: 065
  2. CORTISONE [Concomitant]
     Active Substance: CORTISONE\HYDROCORTISONE
     Route: 065
  3. PREDNISOLON [Concomitant]
     Active Substance: PREDNISOLONE
     Route: 065
  4. VIGANTOLETTEN [Concomitant]
     Active Substance: CHOLECALCIFEROL
     Route: 065
  5. HERCEPTIN [Suspect]
     Active Substance: TRASTUZUMAB
     Indication: BREAST CANCER
     Dosage: THERAPY DURATION: 6 MONTHS
     Route: 042

REACTIONS (2)
  - Pulmonary fibrosis [Unknown]
  - Systemic scleroderma [Unknown]

NARRATIVE: CASE EVENT DATE: 2014
